FAERS Safety Report 5245542-4 (Version None)
Quarter: 2007Q1

REPORT INFORMATION
  Report Type: 
  Country: None (occurrence: None)
  Receive Date: 20070223
  Receipt Date: 20070216
  Transmission Date: 20070707
  Serious: Yes (Other)
  Sender: FDA-Public Use
  Company Number: GB-PFIZER INC-2006148531

PATIENT
  Age: 43 Year
  Sex: Male

DRUGS (9)
  1. DOXORUBICIN HYDROCHLORIDE [Suspect]
     Indication: BURKITT'S LYMPHOMA
     Dates: start: 19980101, end: 19980901
  2. CYCLOPHOSPHAMIDE [Suspect]
     Indication: BURKITT'S LYMPHOMA
     Dates: start: 19980101, end: 19980901
  3. CYTARABINE [Suspect]
     Route: 037
  4. METHOTREXATE [Suspect]
     Indication: BURKITT'S LYMPHOMA
     Route: 037
     Dates: start: 19980101, end: 19980901
  5. PREDNISOLONE [Suspect]
     Indication: BURKITT'S LYMPHOMA
  6. HYDROCORTISONE SODIUM SUCCINATE [Suspect]
     Route: 037
  7. RITONAVIR [Suspect]
  8. SAQUINAVIR [Suspect]
  9. VINCRISTINE [Suspect]
     Indication: BURKITT'S LYMPHOMA
     Dates: start: 19980101, end: 19980901

REACTIONS (2)
  - MULTIPLE FRACTURES [None]
  - OSTEOPOROSIS [None]
